FAERS Safety Report 8287425-1 (Version None)
Quarter: 2012Q2

REPORT INFORMATION
  Report Type: 
  Country: None (occurrence: None)
  Receive Date: 20120410
  Receipt Date: 20120410
  Transmission Date: 20120825
  Serious: Yes (Other)
  Sender: FDA-Public Use
  Company Number: None

PATIENT
  Sex: Female
  Weight: 52.1637 kg

DRUGS (4)
  1. ASPIRIN [Concomitant]
  2. MULTAQ [Suspect]
     Indication: CARDIAC DISORDER
     Dosage: 400MG EVERY 12 HRS   FIRST  WK. IN JAN. 2012
  3. COUMADIN [Concomitant]
  4. LISINOPRIL [Suspect]
     Indication: HYPERTENSION
     Dosage: 10 MG. EVERY 12 HR.  FIRST WK IN JAN. 2012

REACTIONS (2)
  - GASTROINTESTINAL SOUNDS ABNORMAL [None]
  - CONSTIPATION [None]
